FAERS Safety Report 4661919-X (Version None)
Quarter: 2005Q2

REPORT INFORMATION
  Report Type: 
  Country: None (occurrence: None)
  Receive Date: 20050513
  Receipt Date: 20050505
  Transmission Date: 20051028
  Serious: Yes (Disabling)
  Sender: FDA-Public Use
  Company Number: US-MERCK-0505USA00704

PATIENT
  Age: 68 Year
  Sex: Female

DRUGS (13)
  1. VIOXX [Suspect]
     Indication: CONNECTIVE TISSUE DISORDER
     Route: 048
     Dates: start: 20000101, end: 20040101
  2. EFFEXOR [Concomitant]
     Route: 065
  3. AMBIEN [Concomitant]
     Route: 065
  4. NEURONTIN [Concomitant]
     Route: 065
  5. NASONEX [Concomitant]
     Route: 065
  6. PROTOPIC [Concomitant]
     Route: 065
  7. ALLOPURINOL [Concomitant]
     Route: 065
  8. LISINOPRIL [Concomitant]
     Route: 065
  9. TRIAMCINOLONE [Concomitant]
     Route: 065
  10. ALBUTEROL [Concomitant]
     Route: 065
  11. HYDROXYCHLOROQUINE SULFATE [Concomitant]
     Route: 065
  12. FLUOCINONIDE [Concomitant]
     Route: 065
  13. ALPRAZOLAM [Concomitant]
     Route: 065

REACTIONS (1)
  - INTESTINAL HAEMORRHAGE [None]
